FAERS Safety Report 5966121-7 (Version None)
Quarter: 2008Q4

REPORT INFORMATION
  Report Type: 
  Country: None (occurrence: None)
  Receive Date: 20081125
  Receipt Date: 20081117
  Transmission Date: 20090506
  Serious: Yes (Other)
  Sender: FDA-Public Use
  Company Number: ES-BAYER-200830864GPV

PATIENT
  Age: 62 Year
  Sex: Male

DRUGS (3)
  1. NEXAVAR [Suspect]
     Indication: HEPATIC NEOPLASM MALIGNANT
     Route: 048
     Dates: start: 20080601
  2. DIOVAN [Concomitant]
     Indication: HYPERTENSION
     Route: 065
  3. DIOVAN [Concomitant]
     Route: 065

REACTIONS (4)
  - CONSTIPATION [None]
  - HEADACHE [None]
  - HEPATIC NEOPLASM MALIGNANT [None]
  - HYPERTENSION [None]
